FAERS Safety Report 24719974 (Version 1)
Quarter: 2024Q4

REPORT INFORMATION
  Report Type: Spontaneous
  Country: IT (occurrence: IT)
  Receive Date: 20241211
  Receipt Date: 20241211
  Transmission Date: 20250114
  Serious: Yes (Other)
  Sender: GLAND PHARMA LTD
  Company Number: IT-GLANDPHARMA-IT-2024GLNLIT01225

PATIENT
  Age: 71 Year
  Sex: Male

DRUGS (6)
  1. DOXORUBICIN HYDROCHLORIDE [Suspect]
     Active Substance: DOXORUBICIN HYDROCHLORIDE
     Indication: Hodgkin^s disease nodular sclerosis stage IV
     Dosage: 25 MG/Q, CYCLICAL (CYCLE OF 28DAYS, FOR 6 CYCLES IN TOTAL)
     Route: 065
  2. ADCETRIS [Suspect]
     Active Substance: BRENTUXIMAB VEDOTIN
     Indication: Hodgkin^s disease nodular sclerosis stage IV
     Dosage: CYCLICAL (OF 28DAYS, FOR 6 CYCLES IN TOTAL)
     Route: 065
  3. ADCETRIS [Suspect]
     Active Substance: BRENTUXIMAB VEDOTIN
     Dosage: REDUCED DOSE
     Route: 065
  4. VINBLASTINE [Suspect]
     Active Substance: VINBLASTINE
     Indication: Hodgkin^s disease nodular sclerosis stage IV
     Dosage: 6 MG/MQ, (CYCLE OF 28DAYS, FOR 6 CYCLES IN TOTAL)
  5. DACARBAZINE [Suspect]
     Active Substance: DACARBAZINE
     Indication: Hodgkin^s disease nodular sclerosis stage IV
     Dosage: 375 MG/MQ , CYCLE OF 28DAYS, FOR 6 CYCLES IN TOTAL
     Route: 065
  6. GRANULOCYTE COLONY-STIMULATING FACTOR NOS [Concomitant]
     Active Substance: GRANULOCYTE COLONY-STIMULATING FACTOR NOS
     Indication: Prophylaxis
     Route: 065

REACTIONS (7)
  - Posterior reversible encephalopathy syndrome [Recovering/Resolving]
  - Mucosal inflammation [Recovering/Resolving]
  - Dizziness [Recovering/Resolving]
  - Neurotoxicity [Recovering/Resolving]
  - Febrile neutropenia [Recovering/Resolving]
  - Neuropathy peripheral [Recovering/Resolving]
  - Dysphonia [Recovering/Resolving]
